FAERS Safety Report 13580504 (Version 3)
Quarter: 2017Q3

REPORT INFORMATION
  Report Type: Report from Study
  Country: US (occurrence: US)
  Receive Date: 20170525
  Receipt Date: 20170707
  Transmission Date: 20171127
  Serious: Yes (Other)
  Sender: FDA-Public Use
  Company Number: PHEH2017US015399

PATIENT
  Sex: Female

DRUGS (1)
  1. ENTRESTO [Suspect]
     Active Substance: SACUBITRIL\VALSARTAN
     Indication: CARDIAC FAILURE
     Dosage: 50 MG (24 MG SACUBITRIL AND 26 MG VALSARTAN)
     Route: 048

REACTIONS (13)
  - Cough [Unknown]
  - Malaise [Unknown]
  - Retinal tear [Unknown]
  - Weight abnormal [Unknown]
  - Memory impairment [Unknown]
  - Dry throat [Unknown]
  - Dementia Alzheimer^s type [Unknown]
  - Oropharyngeal pain [Unknown]
  - Scleroderma [Unknown]
  - Pain [Unknown]
  - Pyrexia [Unknown]
  - Cyst [Unknown]
  - Visual impairment [Unknown]
